FAERS Safety Report 5857858-9 (Version None)
Quarter: 2008Q3

REPORT INFORMATION
  Report Type: 
  Country: None (occurrence: None)
  Receive Date: 20080818
  Receipt Date: 20080609
  Transmission Date: 20090109
  Serious: No
  Sender: FDA-Public Use
  Company Number: WAES 0806USA01508

PATIENT
  Age: 81 Year
  Sex: Male

DRUGS (12)
  1. JANUVIA [Suspect]
     Indication: DIABETES MELLITUS
     Dosage: 100 MG/DAILY/PO
     Route: 048
     Dates: start: 20080528
  2. AMPRAZO [Concomitant]
  3. LASIX [Concomitant]
  4. VICODIN [Concomitant]
  5. ZOCOR [Concomitant]
  6. ZOLOFT [Concomitant]
  7. ASPIRIN [Concomitant]
  8. ENALAPRIL MALEATE [Concomitant]
  9. GLYBURIDE [Concomitant]
  10. METOPROLOL TARTRATE [Concomitant]
  11. SORBITOL [Concomitant]
  12. SPIRONOLACTONE [Concomitant]

REACTIONS (2)
  - BLOOD GLUCOSE INCREASED [None]
  - OROPHARYNGEAL PAIN [None]
